FAERS Safety Report 5491021-9 (Version None)
Quarter: 2007Q4

REPORT INFORMATION
  Report Type: 
  Country: None (occurrence: None)
  Receive Date: 20071019
  Receipt Date: 20060906
  Transmission Date: 20080405
  Serious: No
  Sender: FDA-Public Use
  Company Number: US-BRISTOL-MYERS SQUIBB COMPANY-13500558

PATIENT
  Sex: Male

DRUGS (1)
  1. CAFCIT [Suspect]
     Indication: PREMATURE BABY
     Route: 042
     Dates: start: 20060722

REACTIONS (1)
  - DRUG LEVEL BELOW THERAPEUTIC [None]
